FAERS Safety Report 21023086 (Version 1)
Quarter: 2022Q2

REPORT INFORMATION
  Report Type: Spontaneous
  Country: US (occurrence: None)
  Receive Date: 20220629
  Receipt Date: 20220629
  Transmission Date: 20220721
  Serious: Yes (Hospitalization)
  Sender: FDA-Public Use
  Company Number: None

PATIENT
  Age: 78 Year
  Sex: Male

DRUGS (2)
  1. DABIGATRAN [Suspect]
     Active Substance: DABIGATRAN
     Indication: Atrial fibrillation
     Dosage: DATES:?10/20/2019- 10/30/201
     Dates: start: 20150720
  2. DABIGATRAN [Suspect]
     Active Substance: DABIGATRAN
     Indication: Chronic obstructive pulmonary disease

REACTIONS (7)
  - Melaena [None]
  - Barrett^s oesophagus [None]
  - Gastrointestinal mucosa hyperaemia [None]
  - Anaemia [None]
  - Gastric haemorrhage [None]
  - Gastric ulcer [None]
  - Chronic obstructive pulmonary disease [None]

NARRATIVE: CASE EVENT DATE: 20191106
